FAERS Safety Report 22154201 (Version 1)
Quarter: 2023Q1

REPORT INFORMATION
  Report Type: Spontaneous
  Country: SE (occurrence: SE)
  Receive Date: 20230330
  Receipt Date: 20230330
  Transmission Date: 20230418
  Serious: Yes (Hospitalization)
  Sender: FDA-Public Use
  Company Number: None

PATIENT
  Age: 58 Year
  Sex: Male
  Weight: 86 kg

DRUGS (6)
  1. PEMBROLIZUMAB [Suspect]
     Active Substance: PEMBROLIZUMAB
     Indication: Leukoencephalopathy
     Dosage: 2MG/KG BODY WEIGHT, EVERY 4 - 6 WEEKS
     Route: 042
     Dates: start: 20220809
  2. ESOMEPRAZOL KRKA [Concomitant]
     Dosage: 20MG, 1X1
     Route: 048
     Dates: start: 20220421
  3. KALCIPOS VITAMIN D [Concomitant]
     Dosage: 500 MG/800 IE, 1X1
     Route: 048
     Dates: start: 20220806
  4. SPIRONOLACTONE [Concomitant]
     Active Substance: SPIRONOLACTONE
     Dosage: 25 MG 1X1
     Route: 048
     Dates: start: 20220804
  5. ACETYLCYSTEINE [Concomitant]
     Active Substance: ACETYLCYSTEINE
     Dosage: 200 MG 1X3
     Route: 048
     Dates: start: 20220721, end: 20220814
  6. AMLODIPINE [Concomitant]
     Active Substance: AMLODIPINE BESYLATE
     Dosage: 5MG, 2X1
     Route: 048
     Dates: start: 20220428

REACTIONS (2)
  - Condition aggravated [Not Recovered/Not Resolved]
  - Pulmonary sarcoidosis [Not Recovered/Not Resolved]

NARRATIVE: CASE EVENT DATE: 20220810
